FAERS Safety Report 6828766-1 (Version None)
Quarter: 2010Q3

REPORT INFORMATION
  Report Type: 
  Country: None (occurrence: None)
  Receive Date: 20100709
  Receipt Date: 20070218
  Transmission Date: 20110219
  Serious: No
  Sender: FDA-Public Use
  Company Number: US-PFIZER INC-2007014921

PATIENT
  Sex: Male
  Weight: 90.72 kg

DRUGS (4)
  1. CHANTIX [Suspect]
     Indication: SMOKING CESSATION THERAPY
     Route: 048
     Dates: start: 20060101
  2. BENADRYL [Suspect]
  3. LISINOPRIL [Concomitant]
  4. FISH OIL [Concomitant]

REACTIONS (3)
  - ADVERSE DRUG REACTION [None]
  - PRURITUS [None]
  - SCAB [None]
